FAERS Safety Report 9501729 (Version 2)
Quarter: 2013Q3

REPORT INFORMATION
  Report Type: Spontaneous
  Country: US (occurrence: US)
  Receive Date: 20130905
  Receipt Date: 20130926
  Transmission Date: 20140515
  Serious: Yes (Hospitalization)
  Sender: FDA-Public Use
  Company Number: US-JNJFOC-20130817542

PATIENT
  Age: 32 Year
  Sex: Male

DRUGS (1)
  1. INVEGA SUSTENNA [Suspect]
     Indication: SCHIZOPHRENIA
     Route: 030
     Dates: start: 20121212, end: 20130425

REACTIONS (5)
  - Abnormal behaviour [Unknown]
  - Aggression [Unknown]
  - Drug ineffective [Unknown]
  - Drug dose omission [Unknown]
  - Treatment noncompliance [Unknown]
